FAERS Safety Report 4732323-0 (Version None)
Quarter: 2005Q3

REPORT INFORMATION
  Report Type: 
  Country: None (occurrence: None)
  Receive Date: 20050726
  Receipt Date: 20050124
  Transmission Date: 20060218
  Serious: Yes (Hospitalization, Other)
  Sender: FDA-Public Use
  Company Number: 05USA0038

PATIENT
  Age: 50 Year
  Sex: Male
  Weight: 92.9874 kg

DRUGS (2)
  1. AGGRASTAT [Suspect]
     Dates: start: 20030930, end: 20030930
  2. HEPARIN [Suspect]
     Dates: start: 20030930, end: 20030930

REACTIONS (1)
  - THROMBOCYTOPENIA [None]
